FAERS Safety Report 22655231 (Version 3)
Quarter: 2023Q4

REPORT INFORMATION
  Report Type: Report from Study
  Country: BR (occurrence: None)
  Receive Date: 20230629
  Receipt Date: 20231002
  Transmission Date: 20240110
  Serious: Yes (Hospitalization)
  Sender: FDA-Public Use
  Company Number: BR-ROCHE-3375578

PATIENT
  Age: 61 Year
  Sex: Female
  Weight: 60.8 kg

DRUGS (8)
  1. PLACEBO [Suspect]
     Active Substance: UNSPECIFIED INGREDIENT
     Indication: HER2 positive breast cancer
     Dosage: ON 26/MAY/2023  START DATE OF MOST RECENT DOSE OF ATEZOLIZUMAB PRIOR TO AE/SAE.
     Route: 041
     Dates: start: 20220823
  2. ADO-TRASTUZUMAB EMTANSINE [Suspect]
     Active Substance: ADO-TRASTUZUMAB EMTANSINE
     Indication: HER2 positive breast cancer
     Dosage: ON 26/MAY/2023 START DATE OF MOST RECENT DOSE OF TRASTUZUMAB EMTANSINE PRIOR TO AE/SAE, 249.84 MG/KG
     Route: 042
     Dates: start: 20220823
  3. LETROZOLE [Concomitant]
     Active Substance: LETROZOLE
     Route: 048
     Dates: start: 20220824
  4. ENALAPRIL [Concomitant]
     Active Substance: ENALAPRIL
     Dates: start: 2016
  5. RIVOTRIL [Concomitant]
     Active Substance: CLONAZEPAM
     Dates: start: 2010, end: 20230626
  6. ACETAMINOPHEN\CODEINE PHOSPHATE [Concomitant]
     Active Substance: ACETAMINOPHEN\CODEINE PHOSPHATE
     Dates: start: 20230412, end: 20230521
  7. ESCITALOPRAM [Concomitant]
     Active Substance: ESCITALOPRAM OXALATE
     Dates: start: 20230412, end: 20230525
  8. PHENOBARBITAL [Concomitant]
     Active Substance: PHENOBARBITAL
     Dates: start: 20230609, end: 20230626

REACTIONS (1)
  - Seizure [Recovered/Resolved]

NARRATIVE: CASE EVENT DATE: 20230608
